FAERS Safety Report 25751888 (Version 1)
Quarter: 2025Q3

REPORT INFORMATION
  Report Type: Spontaneous
  Country: US (occurrence: None)
  Receive Date: 20250901
  Receipt Date: 20250901
  Transmission Date: 20251021
  Serious: Yes (Other)
  Sender: FDA-CTU
  Company Number: None

PATIENT
  Age: 53 Year
  Sex: Female
  Weight: 48.15 kg

DRUGS (5)
  1. LASTACAFT [Suspect]
     Active Substance: ALCAFTADINE
     Indication: Ocular hyperaemia
     Dosage: OTHER QUANTITY : 1 DROP(S);?FREQUENCY : TWICE A DAY;?
     Route: 047
     Dates: start: 20250126, end: 20250724
  2. LASTACAFT [Suspect]
     Active Substance: ALCAFTADINE
     Indication: Eye pruritus
  3. LASTACAFT [Suspect]
     Active Substance: ALCAFTADINE
     Indication: Dry age-related macular degeneration
  4. LASTACAFT [Suspect]
     Active Substance: ALCAFTADINE
     Indication: Eye irritation
  5. ROSUVASTATIN [Concomitant]
     Active Substance: ROSUVASTATIN

REACTIONS (4)
  - Therapy cessation [None]
  - Instillation site pain [None]
  - Instillation site pruritus [None]
  - Instillation site erythema [None]

NARRATIVE: CASE EVENT DATE: 20250724
